FAERS Safety Report 16699877 (Version 2)
Quarter: 2019Q3

REPORT INFORMATION
  Report Type: Spontaneous
  Country: US (occurrence: US)
  Receive Date: 20190813
  Receipt Date: 20190923
  Transmission Date: 20191004
  Serious: Yes (Congenital Anomaly, Other)
  Sender: FDA-Public Use
  Company Number: US-ALLERGAN-1932638US

PATIENT
  Sex: Female
  Weight: 63.49 kg

DRUGS (11)
  1. VRAYLAR [Suspect]
     Active Substance: CARIPRAZINE
     Indication: BIPOLAR DISORDER
     Dosage: 1.5 MG, Q WEEK
     Route: 048
     Dates: start: 201712, end: 20190303
  2. FISH OIL NATURE MADE [Concomitant]
     Dosage: 2 DF
  3. SEROQUEL [Concomitant]
     Active Substance: QUETIAPINE FUMARATE
     Dosage: ONLY ONE DOSE
  4. VRAYLAR [Suspect]
     Active Substance: CARIPRAZINE
     Dosage: UNK
     Dates: start: 20190820
  5. LAMICTAL [Concomitant]
     Active Substance: LAMOTRIGINE
     Indication: BIPOLAR DISORDER
     Dosage: 100 MG, QD
  6. AMBIEN [Concomitant]
     Active Substance: ZOLPIDEM TARTRATE
     Indication: SLEEP DISORDER
     Dosage: ACTUAL: HALF OF THE PRESCRIBED DOSE APPROXMATELY 3 TIMES DURING VERY EARLY PREGNANCY
  7. LITHIUM. [Concomitant]
     Active Substance: LITHIUM
     Indication: BIPOLAR DISORDER
     Dosage: 600 MG, QD
  8. CLONIDINE. [Concomitant]
     Active Substance: CLONIDINE
     Indication: BIPOLAR DISORDER
     Dosage: 1/4 TAB OF 0.1MG DAILY
  9. ZOFRAN [Concomitant]
     Active Substance: ONDANSETRON HYDROCHLORIDE
     Dosage: OCCASIONALLY
  10. FOLIC ACID. [Concomitant]
     Active Substance: FOLIC ACID
     Dosage: 3 MONTHS BEFORE PREGNANCY AND THROUGHT THE PREGNANCY
  11. ORAL CONTRACEPTIVE NOS [Concomitant]
     Active Substance: UNSPECIFIED INGREDIENT

REACTIONS (14)
  - Dyspepsia [Recovered/Resolved]
  - Spina bifida [Unknown]
  - Shock haemorrhagic [Recovered/Resolved]
  - Nausea [Recovered/Resolved]
  - Silent thyroiditis [Recovered/Resolved]
  - Uterine perforation [Recovering/Resolving]
  - Product prescribing error [Unknown]
  - Abortion induced [Unknown]
  - Pregnancy [Unknown]
  - Weight increased [Unknown]
  - Intestinal perforation [Recovering/Resolving]
  - Postoperative wound infection [Recovered/Resolved]
  - Morning sickness [Recovered/Resolved]
  - Fatigue [Recovered/Resolved]

NARRATIVE: CASE EVENT DATE: 20181228
